FAERS Safety Report 22905642 (Version 2)
Quarter: 2024Q1

REPORT INFORMATION
  Report Type: Other
  Country: US (occurrence: None)
  Receive Date: 20230905
  Receipt Date: 20240110
  Transmission Date: 20240409
  Serious: Yes (Hospitalization)
  Sender: FDA-Public Use
  Company Number: US-ROCHE-3406129

PATIENT
  Age: 25 Year
  Sex: Female

DRUGS (1)
  1. OCREVUS [Suspect]
     Active Substance: OCRELIZUMAB
     Indication: Relapsing multiple sclerosis
     Dosage: 300 MG NOW AND 300MG 14 DAYS AFTERWARDS, 600MG EVERY 24 WEEKS, DATE OF TREATMENT, 16-NOV-1922, 18-MA
     Route: 042
     Dates: start: 20220518, end: 20230721

REACTIONS (1)
  - Hypersensitivity [Unknown]
